FAERS Safety Report 8373783-6 (Version None)
Quarter: 2012Q2

REPORT INFORMATION
  Report Type: 
  Country: None (occurrence: None)
  Receive Date: 20120521
  Receipt Date: 20120515
  Transmission Date: 20120825
  Serious: Yes (Other)
  Sender: FDA-Public Use
  Company Number: PHHY2012NL041329

PATIENT
  Sex: Female

DRUGS (6)
  1. ALENDRONATE SODIUM [Concomitant]
  2. CAD [Concomitant]
  3. XYREM [Concomitant]
     Indication: NARCOLEPSY
  4. ONBREZ [Suspect]
     Indication: CHRONIC OBSTRUCTIVE PULMONARY DISEASE
     Dosage: 150 UG, UNK
  5. ALBUTEROL [Concomitant]
  6. ALVESCO [Concomitant]

REACTIONS (2)
  - CATAPLEXY [None]
  - SLEEP DISORDER [None]
